FAERS Safety Report 22780195 (Version 2)
Quarter: 2024Q1

REPORT INFORMATION
  Report Type: Report from Study
  Country: CA (occurrence: CA)
  Receive Date: 20230803
  Receipt Date: 20240108
  Transmission Date: 20240410
  Serious: Yes (Other)
  Sender: FDA-Public Use
  Company Number: CA-CELLTRION INC.-2023CA015100

PATIENT

DRUGS (17)
  1. RITUXIMAB [Suspect]
     Active Substance: RITUXIMAB
     Indication: Rheumatoid arthritis
     Dosage: 1000 MILLIGRAM
     Route: 042
  2. ACTEMRA [Suspect]
     Active Substance: TOCILIZUMAB
     Indication: Rheumatoid arthritis
     Dosage: 600 MG
     Route: 042
  3. PREDNISONE [Suspect]
     Active Substance: PREDNISONE
     Indication: Product used for unknown indication
     Dosage: 5 MILLIGRAM, 1 EVERY 1 DAYS
     Route: 065
  4. BENADRYL [Concomitant]
     Active Substance: DIPHENHYDRAMINE HYDROCHLORIDE
     Indication: Premedication
     Dosage: 50 MILLIGRAM
     Route: 048
  5. CALCIUM CARBONATE [Concomitant]
     Active Substance: CALCIUM CARBONATE
  6. CLOBAZAM [Concomitant]
     Active Substance: CLOBAZAM
  7. EPINEPHRINE [Concomitant]
     Active Substance: EPINEPHRINE
  8. IRON [Concomitant]
     Active Substance: IRON
  9. METHYLPREDNISOLONE SODIUM SUCCINATE [Concomitant]
     Active Substance: METHYLPREDNISOLONE SODIUM SUCCINATE
     Indication: Premedication
     Dosage: 100 MILLIGRAM
     Route: 042
  10. NAPROXEN [Concomitant]
     Active Substance: NAPROXEN
  11. DOCONEXENT\ICOSAPENT [Concomitant]
     Active Substance: DOCONEXENT\ICOSAPENT
  12. PANTOPRAZOLE [Concomitant]
     Active Substance: PANTOPRAZOLE
  13. PANTOPRAZOLE SODIUM [Concomitant]
     Active Substance: PANTOPRAZOLE SODIUM
  14. RISEDRONATE SODIUM [Concomitant]
     Active Substance: RISEDRONATE SODIUM
  15. TYLENOL [Concomitant]
     Active Substance: ACETAMINOPHEN
     Indication: Premedication
     Dosage: 650 MILLIGRAM
     Route: 048
  16. VENTOLIN [Concomitant]
     Active Substance: ALBUTEROL SULFATE
  17. VITAMIN D3 [Concomitant]
     Active Substance: CHOLECALCIFEROL

REACTIONS (25)
  - Anaemia [Unknown]
  - Dyspnoea exertional [Unknown]
  - Fracture [Unknown]
  - Hepatic steatosis [Unknown]
  - Chest discomfort [Unknown]
  - Cyst [Unknown]
  - Rales [Unknown]
  - Hepatojugular reflux [Unknown]
  - Lipohypertrophy [Unknown]
  - Breath sounds abnormal [Unknown]
  - Venous pressure jugular increased [Unknown]
  - Loss of personal independence in daily activities [Unknown]
  - Skin discolouration [Unknown]
  - Skin hypopigmentation [Unknown]
  - Protein urine present [Unknown]
  - White blood cells urine positive [Unknown]
  - Contusion [Unknown]
  - Fall [Unknown]
  - Oedema peripheral [Unknown]
  - Blood pressure increased [Unknown]
  - Lymphadenopathy [Unknown]
  - Rash [Unknown]
  - Fatigue [Unknown]
  - Cough [Unknown]
  - Treatment failure [Unknown]
